FAERS Safety Report 4279821-4 (Version None)
Quarter: 2004Q1

REPORT INFORMATION
  Report Type: 
  Country: None (occurrence: None)
  Receive Date: 20040126
  Receipt Date: 20040112
  Transmission Date: 20041129
  Serious: Yes (Other)
  Sender: FDA-Public Use
  Company Number: FR-JNJFOC-20031201716

PATIENT
  Age: 63 Year
  Sex: Female
  Weight: 51 kg

DRUGS (5)
  1. REMICADE [Suspect]
     Indication: RHEUMATOID ARTHRITIS
     Dosage: 200 MG, INTRAVENOUS
     Route: 042
     Dates: start: 20020915, end: 20030923
  2. METHOTREXATE [Concomitant]
  3. RIFINAH (RIFINAH) [Concomitant]
  4. RIFAMPICINE (RIFAMPICINE) [Concomitant]
  5. ENBREL [Concomitant]

REACTIONS (9)
  - CHOLESTASIS [None]
  - CYTOLYTIC HEPATITIS [None]
  - DUODENAL NEOPLASM [None]
  - ERUCTATION [None]
  - GALLBLADDER CANCER [None]
  - MASS [None]
  - PANCREATIC CARCINOMA [None]
  - PERITONEAL CARCINOMA [None]
  - SINUSITIS [None]
